FAERS Safety Report 7842800-1 (Version None)
Quarter: 2011Q4

REPORT INFORMATION
  Report Type: 
  Country: None (occurrence: None)
  Receive Date: 20111025
  Receipt Date: 20111012
  Transmission Date: 20120403
  Serious: Yes (Hospitalization, Other)
  Sender: FDA-Public Use
  Company Number: US-BAYER-2011-027485

PATIENT
  Age: 22 Year
  Sex: Female
  Weight: 102.4 kg

DRUGS (6)
  1. LEVBID [Concomitant]
     Indication: IRRITABLE BOWEL SYNDROME
     Dosage: 1 PILL DAILY
     Route: 048
     Dates: start: 20060101, end: 20100101
  2. YASMIN [Suspect]
     Indication: MENSTRUAL CYCLE MANAGEMENT
  3. YAZ [Suspect]
     Indication: PREMENSTRUAL SYNDROME
     Dosage: UNK
     Dates: start: 20070401, end: 20100701
  4. YAZ [Suspect]
     Indication: MENSTRUAL CYCLE MANAGEMENT
  5. YASMIN [Suspect]
     Indication: PREMENSTRUAL SYNDROME
     Dosage: UNK
     Dates: start: 20080301, end: 20100701
  6. PRILOSEC [Concomitant]
     Indication: DYSPEPSIA
     Dosage: 1 PILL DAILY
     Route: 048
     Dates: start: 20060101

REACTIONS (8)
  - HAEMOBILIA [None]
  - PAIN [None]
  - NAUSEA [None]
  - DIARRHOEA [None]
  - BILIARY DYSKINESIA [None]
  - ABDOMINAL PAIN UPPER [None]
  - GASTROOESOPHAGEAL REFLUX DISEASE [None]
  - CHOLECYSTITIS CHRONIC [None]
